FAERS Safety Report 9886964 (Version 4)
Quarter: 2015Q4

REPORT INFORMATION
  Report Type: Report from Study
  Country: US (occurrence: US)
  Receive Date: 20140211
  Receipt Date: 20151020
  Transmission Date: 20160305
  Serious: Yes (Life-Threatening)
  Sender: FDA-Public Use
  Company Number: US-ROCHE-1262446

PATIENT
  Age: 60 Year
  Sex: Female
  Weight: 110.78 kg

DRUGS (13)
  1. DICLOFENAC [Concomitant]
     Active Substance: DICLOFENAC
     Route: 065
  2. ENALAPRIL [Concomitant]
     Active Substance: ENALAPRIL
  3. PRAVASTATIN [Concomitant]
     Active Substance: PRAVASTATIN\PRAVASTATIN SODIUM
     Route: 065
  4. TROPICAMIDE. [Concomitant]
     Active Substance: TROPICAMIDE
  5. PHENYLEPHRINE [Concomitant]
     Active Substance: PHENYLEPHRINE\PHENYLEPHRINE HYDROCHLORIDE
  6. LUCENTIS [Suspect]
     Active Substance: RANIBIZUMAB
     Indication: CATARACT
     Dosage: IN 0.1 CC
     Route: 050
  7. ASPIRIN. [Concomitant]
     Active Substance: ASPIRIN
  8. LUCENTIS [Suspect]
     Active Substance: RANIBIZUMAB
     Indication: AMBLYOPIA
     Dosage: 0.5MG/ML LEFT EYE
     Route: 050
     Dates: start: 20120914
  9. MACUGEN [Suspect]
     Active Substance: PEGAPTANIB SODIUM
     Indication: NEOVASCULAR AGE-RELATED MACULAR DEGENERATION
     Route: 065
     Dates: start: 20110330
  10. OFLOXACIN. [Concomitant]
     Active Substance: OFLOXACIN
  11. LUCENTIS [Suspect]
     Active Substance: RANIBIZUMAB
     Indication: NEOVASCULAR AGE-RELATED MACULAR DEGENERATION
  12. PROPARACAINE [Concomitant]
     Active Substance: PROPARACAINE
  13. LUCENTIS [Suspect]
     Active Substance: RANIBIZUMAB
     Indication: MACULAR DEGENERATION
     Dosage: DOSE #9
     Route: 050
     Dates: start: 20121105

REACTIONS (14)
  - Hypertension [Unknown]
  - Neovascular age-related macular degeneration [Unknown]
  - Subretinal fibrosis [Unknown]
  - Cerebrovascular accident [Recovering/Resolving]
  - Cataract [Unknown]
  - Hyperlipidaemia [Unknown]
  - Subretinal fluid [Unknown]
  - Amblyopia [Unknown]
  - Retinal disorder [Unknown]
  - Arthritis [Unknown]
  - Detachment of retinal pigment epithelium [Unknown]
  - Cardiac disorder [Unknown]
  - Retinal neovascularisation [Unknown]
  - Vision blurred [Unknown]

NARRATIVE: CASE EVENT DATE: 20130723
